FAERS Safety Report 14431401 (Version 11)
Quarter: 2019Q1

REPORT INFORMATION
  Report Type: Spontaneous
  Country: US (occurrence: US)
  Receive Date: 20180124
  Receipt Date: 20190208
  Transmission Date: 20190417
  Serious: Yes (Hospitalization, Other)
  Sender: FDA-Public Use
  Company Number: US-PFIZER INC-2016461399

PATIENT
  Age: 43 Year
  Sex: Female
  Weight: 82 kg

DRUGS (5)
  1. AMBIEN [Concomitant]
     Active Substance: ZOLPIDEM TARTRATE
     Indication: INSOMNIA
     Dosage: UNK
  2. XELJANZ [Suspect]
     Active Substance: TOFACITINIB CITRATE
     Indication: RHEUMATOID ARTHRITIS
     Dosage: 5 MG, TWICE DAILY (IN THE MORNING AND AT NIGHT)
     Route: 048
     Dates: end: 20180306
  3. PREDNISONE. [Concomitant]
     Active Substance: PREDNISONE
     Indication: ARTHRITIS
     Dosage: UNK
  4. XELJANZ [Suspect]
     Active Substance: TOFACITINIB CITRATE
     Indication: ARTHRITIS
  5. XELJANZ [Suspect]
     Active Substance: TOFACITINIB CITRATE
     Indication: BURSITIS
     Dosage: 5 MG, UNK
     Route: 048

REACTIONS (8)
  - Furuncle [Recovered/Resolved]
  - Pneumonia [Unknown]
  - Peripheral swelling [Not Recovered/Not Resolved]
  - Gait inability [Unknown]
  - Malaise [Not Recovered/Not Resolved]
  - Arthralgia [Not Recovered/Not Resolved]
  - Headache [Not Recovered/Not Resolved]
  - Swelling [Not Recovered/Not Resolved]

NARRATIVE: CASE EVENT DATE: 201707
